FAERS Safety Report 8489912-X (Version None)
Quarter: 2012Q3

REPORT INFORMATION
  Report Type: 
  Country: None (occurrence: None)
  Receive Date: 20120705
  Receipt Date: 20120628
  Transmission Date: 20120928
  Serious: Yes (Death, Hospitalization, Other)
  Sender: FDA-Public Use
  Company Number: US-BAXTER-2012BAX009368

PATIENT
  Sex: Male

DRUGS (2)
  1. DIANEAL [Suspect]
     Indication: PERITONEAL DIALYSIS
     Route: 033
     Dates: end: 20120615
  2. DIANEAL [Suspect]
     Route: 033
     Dates: end: 20120615

REACTIONS (5)
  - PROSTATE CANCER METASTATIC [None]
  - FALL [None]
  - ASTHENIA [None]
  - HEAD INJURY [None]
  - SUBDURAL HAEMATOMA [None]
